FAERS Safety Report 4940698-2 (Version None)
Quarter: 2006Q1

REPORT INFORMATION
  Report Type: 
  Country: None (occurrence: None)
  Receive Date: 20060313
  Receipt Date: 20060301
  Transmission Date: 20060701
  Serious: Yes (Death)
  Sender: FDA-Public Use
  Company Number: US-BOEHRINGER INGELHEIM PHARMACEUTICALS, INC.-2006-BP-02347BP

PATIENT
  Sex: Female

DRUGS (5)
  1. VIRAMUNE [Suspect]
     Indication: HIV INFECTION
     Route: 048
  2. D4T [Suspect]
     Indication: HIV INFECTION
  3. 3TC [Suspect]
     Indication: HIV INFECTION
  4. D4T [Concomitant]
  5. 3TC [Concomitant]

REACTIONS (1)
  - HEPATIC FAILURE [None]
